FAERS Safety Report 11855207 (Version 1)
Quarter: 2015Q4

REPORT INFORMATION
  Report Type: Spontaneous
  Country: GB (occurrence: GB)
  Receive Date: 20151221
  Receipt Date: 20151221
  Transmission Date: 20160305
  Serious: Yes (Other)
  Sender: FDA-Public Use
  Company Number: GB-WATSON-2015-15859

PATIENT
  Age: 57 Year
  Sex: Female
  Weight: 61 kg

DRUGS (4)
  1. ESOMEPRAZOLE [Concomitant]
     Active Substance: ESOMEPRAZOLE
     Indication: LUNG INFECTION
     Dosage: UNK
     Route: 065
  2. CLARITHROMYCIN (UNKNOWN) [Suspect]
     Active Substance: CLARITHROMYCIN
     Indication: LUNG INFECTION
     Dosage: 500 MG, BID
     Route: 048
     Dates: start: 20150716
  3. CALCICHEW [Concomitant]
     Active Substance: CALCIUM CARBONATE
     Indication: LUNG INFECTION
     Dosage: UNK
     Route: 065
  4. LIVIAL [Concomitant]
     Active Substance: TIBOLONE
     Indication: LUNG INFECTION
     Dosage: UNK
     Route: 065

REACTIONS (7)
  - Abdominal distension [Unknown]
  - Oral pain [Unknown]
  - Discomfort [Unknown]
  - Insomnia [Unknown]
  - Abdominal pain [Unknown]
  - Nausea [Unknown]
  - Dysgeusia [Unknown]

NARRATIVE: CASE EVENT DATE: 20150716
